FAERS Safety Report 8961664 (Version 1)
Quarter: 2012Q4

REPORT INFORMATION
  Report Type: 
  Country: NZ (occurrence: NZ)
  Receive Date: 20121212
  Receipt Date: 20121212
  Transmission Date: 20130627
  Serious: Yes (Hospitalization, Disabling)
  Sender: FDA-Public Use
  Company Number: NZ-COVIDIEN/TYCO HEALTHCARE/MALLINCKRODT-T201204268

PATIENT
  Age: 27 Year
  Sex: Female

DRUGS (2)
  1. FENTANYL CITRATE [Suspect]
     Indication: SPINAL ANAESTHESIA
     Dosage: 12.5 ?g administered over 15 seconds
     Route: 008
  2. BUPIVACAINE [Suspect]
     Indication: SPINAL ANAESTHESIA
     Dosage: 0.5%, 2.5 ml
     Route: 008

REACTIONS (1)
  - Arachnoiditis [Not Recovered/Not Resolved]
